FAERS Safety Report 7389031-X (Version None)
Quarter: 2011Q2

REPORT INFORMATION
  Report Type: 
  Country: None (occurrence: None)
  Receive Date: 20110401
  Receipt Date: 20110328
  Transmission Date: 20111010
  Serious: Yes (Hospitalization, Other)
  Sender: FDA-Public Use
  Company Number: US-ABBOTT-11P-163-0715087-00

PATIENT
  Sex: Female
  Weight: 54.48 kg

DRUGS (8)
  1. NIACIN ER/SIMVASTATIN [Suspect]
     Indication: BLOOD CHOLESTEROL INCREASED
  2. BYSTOLIC [Concomitant]
     Indication: HYPERTENSION
  3. LOVASTATIN [Suspect]
     Indication: BLOOD CHOLESTEROL INCREASED
  4. SPIRONOLACTONE [Concomitant]
     Indication: FLUID RETENTION
     Dates: start: 20110324
  5. NIASPAN [Suspect]
     Indication: LOW DENSITY LIPOPROTEIN INCREASED
     Dates: start: 20060101
  6. ASPIRIN [Suspect]
     Indication: PRODUCT USED FOR UNKNOWN INDICATION
     Dates: end: 20110301
  7. CRESTOR [Concomitant]
     Indication: BLOOD CHOLESTEROL INCREASED
     Dates: start: 20110324
  8. LOSARTAN POTASSIUM [Concomitant]
     Indication: HYPERTENSION
     Dates: start: 20110324

REACTIONS (7)
  - BACK PAIN [None]
  - PRURITUS [None]
  - CORONARY ARTERY EMBOLISM [None]
  - CAROTID ARTERY STENOSIS [None]
  - FLUSHING [None]
  - EAR PRURITUS [None]
  - CONSTIPATION [None]
